FAERS Safety Report 7473969-9 (Version None)
Quarter: 2011Q2

REPORT INFORMATION
  Report Type: 
  Country: None (occurrence: None)
  Receive Date: 20110511
  Receipt Date: 20100312
  Transmission Date: 20111010
  Serious: Yes (Other)
  Sender: FDA-Public Use
  Company Number: DE-GENENTECH-318300

PATIENT
  Age: 84 Year
  Sex: Female

DRUGS (1)
  1. LUCENTIS [Suspect]
     Indication: AGE-RELATED MACULAR DEGENERATION
     Dosage: UNK
     Route: 031
     Dates: start: 20091002

REACTIONS (5)
  - PANCREATIC DISORDER [None]
  - MACULAR DEGENERATION [None]
  - NAUSEA [None]
  - ABDOMINAL DISCOMFORT [None]
  - MALAISE [None]
